FAERS Safety Report 13063287 (Version 2)
Quarter: 2017Q4

REPORT INFORMATION
  Report Type: Spontaneous
  Country: IN (occurrence: IN)
  Receive Date: 20161227
  Receipt Date: 20171026
  Transmission Date: 20180320
  Serious: Yes (Other)
  Sender: FDA-Public Use
  Company Number: IN-MACLEODS PHARMACEUTICALS US LTD-MAC2016004048

PATIENT

DRUGS (1)
  1. SILDENAFIL. [Suspect]
     Active Substance: SILDENAFIL
     Indication: PULMONARY HYPERTENSION
     Dosage: 0.8 MG/KG/DAY IN THREE DIVIDED DOSES ON THE 33RD PMA WEEK
     Route: 048

REACTIONS (4)
  - Disease recurrence [Recovering/Resolving]
  - Retinal neovascularisation [Recovering/Resolving]
  - Retinal haemorrhage [Recovering/Resolving]
  - Off label use [Recovering/Resolving]
